FAERS Safety Report 8489424-3 (Version None)
Quarter: 2012Q3

REPORT INFORMATION
  Report Type: 
  Country: None (occurrence: None)
  Receive Date: 20120705
  Receipt Date: 20120628
  Transmission Date: 20120928
  Serious: Yes (Hospitalization, Other)
  Sender: FDA-Public Use
  Company Number: GB-B.I. PHARMACEUTICALS,INC./RIDGEFIELD-2012-UK-00853UK

PATIENT
  Age: 84 Year
  Sex: Female

DRUGS (7)
  1. DIGOXIN [Concomitant]
     Dosage: 125 MCG
  2. PRADAXA [Suspect]
     Indication: ATRIAL FIBRILLATION
     Dosage: 220 MG
     Route: 048
     Dates: end: 20120608
  3. ISMN [Concomitant]
     Dosage: 60 MG
  4. BUMETANIDE [Concomitant]
     Dosage: 2 MG
  5. CHLORPHENIRAMINE TAB [Concomitant]
     Dosage: 8 MG
  6. BISOPROLOL FUMARATE [Concomitant]
     Dosage: 5 MG
  7. LEVOTHYROXINE SODIUM [Concomitant]
     Dosage: 125 MCG

REACTIONS (1)
  - BLEEDING TIME PROLONGED [None]
